FAERS Safety Report 15272096 (Version 1)
Quarter: 2018Q3

REPORT INFORMATION
  Report Type: Spontaneous
  Country: AT (occurrence: AT)
  Receive Date: 20180813
  Receipt Date: 20180813
  Transmission Date: 20181010
  Serious: Yes (Hospitalization)
  Sender: FDA-Public Use
  Company Number: AT-ELI_LILLY_AND_COMPANY-AT201808002023

PATIENT

DRUGS (3)
  1. GEMCITABINE HYDROCHLORIDE. [Suspect]
     Active Substance: GEMCITABINE HYDROCHLORIDE
     Indication: SARCOMA
     Dosage: UNK UNK, UNKNOWN
     Route: 065
  2. NAVELBINE [Suspect]
     Active Substance: VINORELBINE TARTRATE
     Indication: OFF LABEL USE
     Dosage: UNK UNK, 2/M
     Route: 042
  3. NAVELBINE [Suspect]
     Active Substance: VINORELBINE TARTRATE
     Indication: SARCOMA

REACTIONS (2)
  - Pyrexia [Unknown]
  - Off label use [Unknown]
